FAERS Safety Report 21779396 (Version 2)
Quarter: 2022Q4

REPORT INFORMATION
  Report Type: Spontaneous
  Country: ES (occurrence: ES)
  Receive Date: 20221226
  Receipt Date: 20221229
  Transmission Date: 20230113
  Serious: Yes (Life-Threatening)
  Sender: FDA-Public Use
  Company Number: ES-TILLOMEDPR-2021-EPL-000942

PATIENT
  Age: 51 Year
  Sex: Male

DRUGS (12)
  1. HYDROCORTISONE [Suspect]
     Active Substance: HYDROCORTISONE
     Indication: Peripheral T-cell lymphoma unspecified stage IV
     Dosage: TRIPLE INTRATHECAL THERAPY
     Route: 037
  2. CYCLOPHOSPHAMIDE [Suspect]
     Active Substance: CYCLOPHOSPHAMIDE
     Indication: Peripheral T-cell lymphoma unspecified stage IV
     Dosage: CHOEP (6 CYCLES)
     Route: 065
  3. DOXORUBICIN [Suspect]
     Active Substance: DOXORUBICIN
     Indication: Peripheral T-cell lymphoma unspecified stage IV
     Dosage: CHOEP (6 CYCLES)
     Route: 065
  4. VINCRISTINE [Suspect]
     Active Substance: VINCRISTINE
     Indication: Peripheral T-cell lymphoma unspecified stage IV
     Dosage: CHOEP (6 CYCLES)
     Route: 065
  5. ETOPOSIDE [Suspect]
     Active Substance: ETOPOSIDE
     Indication: Peripheral T-cell lymphoma unspecified stage IV
     Dosage: CHOEP (6 CYCLES)
     Route: 065
  6. ETOPOSIDE [Suspect]
     Active Substance: ETOPOSIDE
     Dosage: BEAM REGIMEN
     Route: 065
  7. PREDNISONE [Suspect]
     Active Substance: PREDNISONE
     Indication: Peripheral T-cell lymphoma unspecified stage IV
     Dosage: CHOEP (6 CYCLES)
     Route: 065
  8. METHOTREXATE [Suspect]
     Active Substance: METHOTREXATE
     Indication: Peripheral T-cell lymphoma unspecified stage IV
     Dosage: TRIPLE INTRATHECAL THERAPY
     Route: 037
  9. CYTARABINE [Suspect]
     Active Substance: CYTARABINE
     Indication: Peripheral T-cell lymphoma unspecified stage IV
     Dosage: INTRATHECAL TRIPLE THERAPY
     Route: 037
  10. CYTARABINE [Suspect]
     Active Substance: CYTARABINE
     Dosage: BEAM REGIMEN
     Route: 065
  11. CARMUSTINE [Suspect]
     Active Substance: CARMUSTINE
     Indication: Peripheral T-cell lymphoma unspecified stage IV
     Dosage: BEAM REGIMEN
     Route: 065
  12. MELPHALAN [Suspect]
     Active Substance: MELPHALAN
     Indication: Peripheral T-cell lymphoma unspecified stage IV
     Dosage: BEAM REGIMEN
     Route: 065

REACTIONS (1)
  - Autologous haematopoietic stem cell transplant [Recovering/Resolving]

NARRATIVE: CASE EVENT DATE: 20200201
